FAERS Safety Report 6686818-3 (Version None)
Quarter: 2010Q2

REPORT INFORMATION
  Report Type: 
  Country: None (occurrence: None)
  Receive Date: 20100401
  Receipt Date: 20100401
  Transmission Date: 20101027
  Serious: No
  Sender: FDA-Public Use
  Company Number: None

PATIENT
  Sex: Male
  Weight: 68.0396 kg

DRUGS (1)
  1. CREST BAKING SODA + PEROXIDE WITH TARTAR CONTROL [Suspect]
     Indication: DENTAL DISORDER PROPHYLAXIS
     Dosage: DAILY PO
     Route: 048
     Dates: start: 20100220, end: 20100324

REACTIONS (3)
  - GINGIVAL DISORDER [None]
  - LIP BLISTER [None]
  - OROPHARYNGEAL BLISTERING [None]
